FAERS Safety Report 17679336 (Version 3)
Quarter: 2020Q3

REPORT INFORMATION
  Report Type: Spontaneous
  Country: US (occurrence: US)
  Receive Date: 20200417
  Receipt Date: 20200909
  Transmission Date: 20201102
  Serious: Yes (Other)
  Sender: FDA-Public Use
  Company Number: US-BAYER-2020-062430

PATIENT
  Age: 72 Year
  Sex: Male
  Weight: 64.85 kg

DRUGS (15)
  1. BUMETANIDE. [Concomitant]
     Active Substance: BUMETANIDE
  2. CARBIDOPA/LEVODOPA [Concomitant]
     Active Substance: CARBIDOPA\LEVODOPA
  3. NUPLAZID [Concomitant]
     Active Substance: PIMAVANSERIN TARTRATE
     Dosage: 34 MG
  4. PRAMIPEXOLE. [Concomitant]
     Active Substance: PRAMIPEXOLE
     Dosage: 25 MG
  5. BELSOMRA [Concomitant]
     Active Substance: SUVOREXANT
  6. TRAMADOL. [Concomitant]
     Active Substance: TRAMADOL
  7. MIRALAX [Suspect]
     Active Substance: POLYETHYLENE GLYCOL 3350
  8. MEMANTINE. [Concomitant]
     Active Substance: MEMANTINE
  9. RYTARY [Concomitant]
     Active Substance: CARBIDOPA\LEVODOPA
     Dosage: 95 MG
     Dates: start: 20191121
  10. RIVASTIGMINE. [Concomitant]
     Active Substance: RIVASTIGMINE
     Dosage: 1.5 MG
  11. KLOR?CON M20 [Concomitant]
     Active Substance: POTASSIUM CHLORIDE
  12. RYTARY [Concomitant]
     Active Substance: CARBIDOPA\LEVODOPA
     Dosage: 23.7 UNK
  13. ASPIRIN [ACETYLSALICYLIC ACID] [Concomitant]
     Active Substance: ASPIRIN
  14. GOCOVRI [Concomitant]
     Active Substance: AMANTADINE
     Dosage: 68.5 MG
     Route: 048
     Dates: start: 20191123
  15. FINASTERIDE. [Concomitant]
     Active Substance: FINASTERIDE

REACTIONS (15)
  - Anal incontinence [None]
  - Hallucination [None]
  - Prostatomegaly [Unknown]
  - Blood urine present [None]
  - Parkinson^s disease [None]
  - Bladder obstruction [None]
  - Confusional state [None]
  - Balance disorder [None]
  - On and off phenomenon [None]
  - Freezing phenomenon [None]
  - Bladder catheterisation [None]
  - Dementia [None]
  - Product dose omission issue [None]
  - Insomnia [Not Recovered/Not Resolved]
  - Urinary incontinence [None]

NARRATIVE: CASE EVENT DATE: 20200605
